FAERS Safety Report 4710387-8 (Version None)
Quarter: 2005Q3

REPORT INFORMATION
  Report Type: 
  Country: None (occurrence: None)
  Receive Date: 20050711
  Receipt Date: 20050615
  Transmission Date: 20060218
  Serious: Yes (Other)
  Sender: FDA-Public Use
  Company Number: JP-BOEHRINGER INGELHEIM PHARMACEUTICALS, INC.-2005-BP-10204YA

PATIENT
  Sex: Male

DRUGS (13)
  1. HARNAL [Suspect]
     Route: 048
     Dates: start: 20050506
  2. CEFZON [Suspect]
     Indication: SKIN ULCER
     Route: 048
     Dates: start: 20050603, end: 20050606
  3. HI-PEN [Suspect]
     Route: 048
     Dates: start: 20050520, end: 20050606
  4. NISOLDIPINE [Concomitant]
     Route: 048
  5. ISOSORBIDE MONONITRATE [Concomitant]
     Route: 048
  6. PREDNISOLONE [Concomitant]
     Route: 048
  7. FAMOTIDINE [Concomitant]
     Route: 048
  8. PRAVASTATIN SODIUM [Concomitant]
     Route: 048
  9. TAMOXIFEN CITRATE [Concomitant]
     Route: 048
     Dates: end: 20050606
  10. HERBAL POLLEN NOS [Concomitant]
     Route: 048
  11. ACETAMINOPHEN [Concomitant]
     Route: 048
  12. TEPRENONE [Concomitant]
     Route: 048
  13. STREPTOCOCCUS FAECALIS [Concomitant]
     Route: 048

REACTIONS (1)
  - AGRANULOCYTOSIS [None]
